FAERS Safety Report 9312186 (Version 2)
Quarter: 2013Q2

REPORT INFORMATION
  Report Type: Report from Study
  Country: SE (occurrence: SE)
  Receive Date: 20130528
  Receipt Date: 20130528
  Transmission Date: 20140414
  Serious: Yes (Other)
  Sender: FDA-Public Use
  Company Number: SE-BAXTER-2013BAX002023

PATIENT
  Age: 1 Year
  Sex: 0

DRUGS (2)
  1. RECOMBINATE 1000 IU, PULVER OCH V?TSKA TILL INJEKTIONSV?TSKA, L?SNING [Suspect]
     Indication: FACTOR VIII DEFICIENCY
     Dosage: {50
     Route: 065
  2. RECOMBINATE 1000 IU, PULVER OCH V?TSKA TILL INJEKTIONSV?TSKA, L?SNING [Suspect]

REACTIONS (2)
  - Factor VIII inhibition [Not Recovered/Not Resolved]
  - Drug ineffective [Not Recovered/Not Resolved]
